FAERS Safety Report 9613751 (Version 4)
Quarter: 2014Q1

REPORT INFORMATION
  Report Type: Report from Study
  Country: BR (occurrence: BR)
  Receive Date: 20131010
  Receipt Date: 20140203
  Transmission Date: 20141002
  Serious: Yes (Hospitalization, Other)
  Sender: FDA-Public Use
  Company Number: BR-ROCHE-727173

PATIENT
  Sex: Female
  Weight: 52 kg

DRUGS (9)
  1. MABTHERA [Suspect]
     Dosage: 2 INFUSIONS
     Route: 042
     Dates: start: 20100708, end: 20100727
  2. BIOFENAC (DICLOFENAC) [Suspect]
     Indication: PRODUCT USED FOR UNKNOWN INDICATION
     Route: 065
  3. EUTHYROX [Concomitant]
     Dosage: INDICATION: THYROID
     Route: 065
  4. PANTOPRAZOL [Concomitant]
     Dosage: INDICATION: STOMACH
     Route: 065
  5. METICORTEN [Concomitant]
  6. TYLENOL [Concomitant]
     Indication: PREMEDICATION
     Dosage: DOSE: 2 UNITS. PREMEDICATION BEFORE MABTHERA
     Route: 065
  7. DEPURA [Concomitant]
  8. OMEPRAZOLE [Concomitant]
  9. MABTHERA [Suspect]
     Indication: RHEUMATOID ARTHRITIS
     Route: 042
     Dates: start: 20091201, end: 20130504

REACTIONS (10)
  - Nodule [Recovering/Resolving]
  - Laryngeal oedema [Recovered/Resolved]
  - Ovarian disorder [Not Recovered/Not Resolved]
  - Drug ineffective [Unknown]
  - Anaemia [Not Recovered/Not Resolved]
  - Weight decreased [Recovered/Resolved]
  - Alopecia [Recovering/Resolving]
  - Urinary tract infection [Recovered/Resolved]
  - Viral infection [Recovered/Resolved]
  - Pain [Not Recovered/Not Resolved]
